FAERS Safety Report 13589670 (Version 1)
Quarter: 2017Q2

REPORT INFORMATION
  Report Type: Spontaneous
  Country: IE (occurrence: IE)
  Receive Date: 20170530
  Receipt Date: 20170530
  Transmission Date: 20170830
  Serious: Yes (Other)
  Sender: FDA-Public Use
  Company Number: IE-TEVA-769984ACC

PATIENT
  Sex: Female

DRUGS (1)
  1. PANTOPRAZOLE TEVA PHARMA [Suspect]
     Active Substance: PANTOPRAZOLE SODIUM

REACTIONS (5)
  - Hyperhidrosis [Recovering/Resolving]
  - Hypoaesthesia [Recovering/Resolving]
  - Asthenia [Recovering/Resolving]
  - Diarrhoea [Recovering/Resolving]
  - Tremor [Recovering/Resolving]
